FAERS Safety Report 8496352-6 (Version None)
Quarter: 2012Q3

REPORT INFORMATION
  Report Type: 
  Country: None (occurrence: None)
  Receive Date: 20120709
  Receipt Date: 20120702
  Transmission Date: 20120928
  Serious: Yes (Other)
  Sender: FDA-Public Use
  Company Number: US-TEVA-346647USA

PATIENT
  Age: 29 Year
  Sex: Male

DRUGS (4)
  1. SODIUM ACETATE [Suspect]
     Dosage: BOLUS DOSES
     Route: 065
  2. PROPOFOL [Concomitant]
     Route: 065
  3. SODIUM ACETATE [Suspect]
     Indication: RESUSCITATION
     Dosage: 154 MEQ INFUSION IN 1L WATER AT 100CC/H
     Route: 050
  4. MIDAZOLAM [Concomitant]
     Route: 065

REACTIONS (1)
  - LACTIC ACIDOSIS [None]
